FAERS Safety Report 5108277-4 (Version None)
Quarter: 2006Q3

REPORT INFORMATION
  Report Type: 
  Country: None (occurrence: None)
  Receive Date: 20060914
  Receipt Date: 20060914
  Transmission Date: 20061208
  Serious: Yes (Life-Threatening)
  Sender: FDA-Public Use
  Company Number: None

PATIENT
  Age: 73 Year
  Sex: Male
  Weight: 93.441 kg

DRUGS (6)
  1. CINACALCET 30MG [Suspect]
     Indication: HYPERPARATHYROIDISM
     Dosage: CINACALCET 30 MG BID
     Dates: start: 20060117, end: 20060207
  2. ATORVASTATIN [Concomitant]
  3. ERGOCALCIFEROL [Concomitant]
  4. LISINOPRIL [Concomitant]
  5. OMEPRAZOLE [Concomitant]
  6. TAMSULOSIN HCL [Concomitant]

REACTIONS (1)
  - ANGIONEUROTIC OEDEMA [None]
